FAERS Safety Report 16568757 (Version 1)
Quarter: 2019Q3

REPORT INFORMATION
  Report Type: Spontaneous
  Country: US (occurrence: US)
  Receive Date: 20190713
  Receipt Date: 20190713
  Transmission Date: 20191004
  Serious: No
  Sender: FDA-Public Use
  Company Number: US-SHIRE-US201922511

PATIENT
  Sex: Male

DRUGS (2)
  1. VYVANSE [Suspect]
     Active Substance: LISDEXAMFETAMINE DIMESYLATE
     Indication: PRODUCT USED FOR UNKNOWN INDICATION
     Dosage: UNK
     Route: 065
  2. VYVANSE [Suspect]
     Active Substance: LISDEXAMFETAMINE DIMESYLATE
     Dosage: 20 MILLIGRAM, 3X/DAY:TID
     Route: 065

REACTIONS (8)
  - Off label use [Unknown]
  - Disturbance in attention [Unknown]
  - Anger [Unknown]
  - Mental disorder [Unknown]
  - Fatigue [Unknown]
  - Psychotic behaviour [Unknown]
  - Adverse drug reaction [Unknown]
  - Paranoia [Unknown]
